FAERS Safety Report 4591425-2 (Version None)
Quarter: 2005Q1

REPORT INFORMATION
  Report Type: 
  Country: None (occurrence: None)
  Receive Date: 20050223
  Receipt Date: 20050223
  Transmission Date: 20050727
  Serious: Yes (Other)
  Sender: FDA-Public Use
  Company Number: None

PATIENT
  Sex: Male

DRUGS (1)
  1. DOCUSATE SODIUM LIQUID [Suspect]
     Indication: CONSTIPATION
     Dosage: ONCE DAILY  ORAL
     Route: 048

REACTIONS (1)
  - ANAPHYLACTIC REACTION [None]
